FAERS Safety Report 6024086-6 (Version None)
Quarter: 2008Q4

REPORT INFORMATION
  Report Type: 
  Country: None (occurrence: None)
  Receive Date: 20081224
  Receipt Date: 20081209
  Transmission Date: 20090506
  Serious: Yes (Hospitalization)
  Sender: FDA-Public Use
  Company Number: 2008PL000276

PATIENT
  Age: 75 Year
  Sex: Male

DRUGS (2)
  1. LABETALOL HYDROCHLORIDE [Suspect]
     Indication: HYPERTENSION
     Dosage: IV
     Route: 042
  2. NITROGLYCERIN [Concomitant]

REACTIONS (3)
  - POST PROCEDURAL SEPSIS [None]
  - POSTOPERATIVE WOUND INFECTION [None]
  - WOUND DECOMPOSITION [None]
